FAERS Safety Report 5051798-3 (Version None)
Quarter: 2006Q3

REPORT INFORMATION
  Report Type: 
  Country: None (occurrence: None)
  Receive Date: 20060712
  Receipt Date: 20060712
  Transmission Date: 20061208
  Serious: Yes (Other)
  Sender: FDA-Public Use
  Company Number: None

PATIENT
  Age: 84 Year
  Sex: Male
  Weight: 74.8 kg

DRUGS (1)
  1. FOSINOPRIL SODIUM [Suspect]
     Indication: HYPERTENSION
     Dosage: 40 MG , 40 MG QD, ORAL
     Route: 048
     Dates: start: 20050516, end: 20060510

REACTIONS (1)
  - ANGIONEUROTIC OEDEMA [None]
